FAERS Safety Report 13596832 (Version 1)
Quarter: 2017Q2

REPORT INFORMATION
  Report Type: Spontaneous
  Country: US (occurrence: US)
  Receive Date: 20170520
  Receipt Date: 20170520
  Transmission Date: 20170830
  Serious: Yes (Other)
  Sender: FDA-Public Use
  Company Number: None

PATIENT
  Age: 84 Year
  Sex: Female
  Weight: 65.25 kg

DRUGS (14)
  1. BABY ASPIRIN [Concomitant]
     Active Substance: ASPIRIN
  2. VITAMIN B12 [Concomitant]
     Active Substance: CYANOCOBALAMIN
  3. PACEMAKER [Concomitant]
  4. DEFIBRILLATOR [Concomitant]
  5. SINGULAIR [Concomitant]
     Active Substance: MONTELUKAST SODIUM
  6. BUMEX [Concomitant]
     Active Substance: BUMETANIDE
  7. LOSARTAN. [Concomitant]
     Active Substance: LOSARTAN
  8. PLAVIX [Concomitant]
     Active Substance: CLOPIDOGREL BISULFATE
  9. RESTASIS [Concomitant]
     Active Substance: CYCLOSPORINE
  10. VICTOZA [Concomitant]
     Active Substance: LIRAGLUTIDE
  11. COREG [Concomitant]
     Active Substance: CARVEDILOL
  12. PROLIA [Suspect]
     Active Substance: DENOSUMAB
     Indication: OSTEOPOROSIS
     Dosage: ?          QUANTITY:1 INJECTION(S);OTHER FREQUENCY:EVERY 6 MONTHS;?
     Route: 030
     Dates: start: 20161213
  13. LEVOTHYROXINE. [Concomitant]
     Active Substance: LEVOTHYROXINE
  14. PROTONIX [Concomitant]
     Active Substance: PANTOPRAZOLE SODIUM

REACTIONS (17)
  - Groin pain [None]
  - Arthralgia [None]
  - Pruritus [None]
  - Nausea [None]
  - Peripheral swelling [None]
  - Tooth fracture [None]
  - Cough [None]
  - Mastication disorder [None]
  - Musculoskeletal pain [None]
  - Decreased appetite [None]
  - Stomatitis [None]
  - Oral pain [None]
  - Neck pain [None]
  - Pain in extremity [None]
  - Pain [None]
  - Gait disturbance [None]
  - Pain in jaw [None]

NARRATIVE: CASE EVENT DATE: 20161216
